FAERS Safety Report 18190455 (Version 1)
Quarter: 2020Q3

REPORT INFORMATION
  Report Type: Spontaneous
  Country: US (occurrence: US)
  Receive Date: 20200825
  Receipt Date: 20200825
  Transmission Date: 20201103
  Serious: No
  Sender: FDA-Public Use
  Company Number: NVSC2020US233879

PATIENT
  Sex: Male

DRUGS (2)
  1. TAFINLAR [Suspect]
     Active Substance: DABRAFENIB MESYLATE
     Indication: CHOLANGIOCARCINOMA
     Dosage: 100 MG, BID
     Route: 048
     Dates: start: 20200623, end: 202007
  2. MEKINIST [Suspect]
     Active Substance: TRAMETINIB DIMETHYL SULFOXIDE
     Indication: CHOLANGIOCARCINOMA
     Dosage: 1 MG, QD
     Route: 048
     Dates: start: 20200623, end: 202007

REACTIONS (3)
  - Asthenia [Unknown]
  - Gait inability [Unknown]
  - Nausea [Unknown]
